FAERS Safety Report 10039819 (Version 3)
Quarter: 2014Q2

REPORT INFORMATION
  Report Type: Report from Study
  Country: US (occurrence: US)
  Receive Date: 20140326
  Receipt Date: 20140609
  Transmission Date: 20141212
  Serious: Yes (Hospitalization)
  Sender: FDA-Public Use
  Company Number: US-JNJFOC-20140310624

PATIENT
  Age: 73 Year
  Sex: Female
  Weight: 90.72 kg

DRUGS (5)
  1. STELARA [Suspect]
     Indication: PSORIASIS
     Dosage: START DATE U/FEB/U. RECEIVED 6-7 INJECTIONS
     Route: 058
     Dates: end: 201307
  2. HYDROCHLOROTHIAZIDE [Concomitant]
     Indication: DIURETIC THERAPY
     Dosage: STARTED IN 2003 OR 2005
     Route: 048
  3. DIOVAN [Concomitant]
     Indication: BLOOD PRESSURE
     Route: 048
     Dates: start: 2005
  4. NORVASC [Concomitant]
     Indication: BLOOD PRESSURE
     Dosage: STARTED IN 2009/ 2010
     Route: 048
  5. BABY ASPIRIN [Concomitant]
     Indication: PROPHYLAXIS
     Route: 048

REACTIONS (2)
  - Diverticulum [Not Recovered/Not Resolved]
  - Adrenal insufficiency [Not Recovered/Not Resolved]
